FAERS Safety Report 7862986 (Version 5)
Quarter: 2013Q1

REPORT INFORMATION
  Report Type: Report from Study
  Country: BE (occurrence: BE)
  Receive Date: 20110318
  Receipt Date: 20130218
  Transmission Date: 20140127
  Serious: Yes (Hospitalization, Other)
  Sender: FDA-Public Use
  Company Number: BE-ROCHE-764729

PATIENT
  Age: 48 Year
  Sex: Male
  Weight: 86 kg

DRUGS (10)
  1. PEG-INTERFERON ALFA 2A [Suspect]
     Indication: HEPATITIS C
     Route: 058
     Dates: start: 20100809, end: 20101105
  2. RIBAVIRIN [Suspect]
     Indication: HEPATITIS C
     Dosage: FREQUENCY: DAILY
     Route: 048
     Dates: start: 20100809, end: 20101105
  3. DEXPANTHENOL [Concomitant]
     Indication: PROPHYLAXIS AGAINST GASTROINTESTINAL ULCER
     Route: 048
  4. ALDACTONE [Concomitant]
     Indication: OEDEMA PERIPHERAL
     Dosage: FREQUENCY : DAILY
     Route: 048
     Dates: start: 20101025, end: 20101206
  5. INDERAL RETARD [Concomitant]
     Indication: PROPHYLAXIS
     Dosage: START DATE-UNKNOWN, FREQUENCY-DAILY
     Route: 048
  6. LACTULOSE [Concomitant]
     Indication: ENCEPHALOPATHY
     Dosage: FREQUENCY :DAILY
     Route: 048
  7. ENTEROL [Concomitant]
     Indication: ENCEPHALOPATHY
     Dosage: DOSING AMOUNT : 1 CO , FREQUECNY : DAILY
     Route: 048
  8. ENTEROL [Concomitant]
     Dosage: DOSING AMOUNT -2 CO ,FREQUENCY-DAILY
     Route: 048
  9. LASIX [Concomitant]
     Indication: OEDEMA
     Dosage: FREQUECNY : DAILY
     Route: 048
  10. PANTOMED (BELGIUM) [Concomitant]
     Indication: PROPHYLAXIS AGAINST GASTROINTESTINAL ULCER
     Dosage: DAILY
     Route: 048

REACTIONS (7)
  - Hepatic cirrhosis [Recovering/Resolving]
  - Encephalopathy [Recovered/Resolved]
  - Renal failure acute [Recovering/Resolving]
  - Ascites [Recovering/Resolving]
  - Coagulopathy [Recovering/Resolving]
  - Anaemia [Recovering/Resolving]
  - Pneumonia [Recovering/Resolving]
